FAERS Safety Report 6422714-4 (Version None)
Quarter: 2009Q4

REPORT INFORMATION
  Report Type: 
  Country: None (occurrence: None)
  Receive Date: 20091102
  Receipt Date: 20091022
  Transmission Date: 20100525
  Serious: Yes (Other)
  Sender: FDA-Public Use
  Company Number: US-JNJFOC-20091007827

PATIENT
  Sex: Female

DRUGS (1)
  1. TOPAMAX [Suspect]
     Indication: DRUG USE FOR UNKNOWN INDICATION
     Route: 045

REACTIONS (6)
  - HALLUCINATION [None]
  - INCORRECT ROUTE OF DRUG ADMINISTRATION [None]
  - REPETITIVE SPEECH [None]
  - SPEECH DISORDER [None]
  - VERTIGO [None]
  - VISION BLURRED [None]
